FAERS Safety Report 7815635-3 (Version None)
Quarter: 2011Q4

REPORT INFORMATION
  Report Type: 
  Country: None (occurrence: None)
  Receive Date: 20111014
  Receipt Date: 20111007
  Transmission Date: 20120403
  Serious: Yes (Other)
  Sender: FDA-Public Use
  Company Number: US-CELGENEUS-163-21880-11081342

PATIENT
  Sex: Female
  Weight: 66.738 kg

DRUGS (11)
  1. CALCIUM CARBONATE [Concomitant]
     Route: 065
  2. REVLIMID [Suspect]
     Dosage: 20 MILLIGRAM
     Route: 048
     Dates: start: 20110701
  3. AZILECT [Concomitant]
     Route: 065
  4. CYLEXA [Concomitant]
     Route: 065
  5. MEDROL [Concomitant]
     Route: 065
  6. REVLIMID [Suspect]
     Indication: MULTIPLE MYELOMA
     Dosage: 10 MILLIGRAM
     Route: 048
     Dates: start: 20101229
  7. ASPIRIN [Concomitant]
     Route: 065
  8. ATENOLOL [Concomitant]
     Route: 065
  9. BENICAR HCT [Concomitant]
     Route: 065
  10. REVLIMID [Suspect]
     Dosage: 50 MILLIGRAM
     Route: 048
  11. SINEMET [Concomitant]
     Route: 065

REACTIONS (2)
  - BREAST CANCER [None]
  - MULTIPLE MYELOMA [None]
